FAERS Safety Report 19942578 (Version 1)
Quarter: 2021Q4

REPORT INFORMATION
  Report Type: Spontaneous
  Country: US (occurrence: US)
  Receive Date: 20211011
  Receipt Date: 20211011
  Transmission Date: 20220303
  Serious: No
  Sender: FDA-Public Use
  Company Number: US-KARYOPHARM-2021KPT001110

PATIENT

DRUGS (1)
  1. XPOVIO [Suspect]
     Active Substance: SELINEXOR
     Indication: Plasma cell myeloma
     Dosage: 80 MG, WEEKLY
     Route: 048
     Dates: start: 20210819, end: 20210830

REACTIONS (6)
  - Mental impairment [Unknown]
  - Oral pain [Unknown]
  - Anger [Unknown]
  - Hypersomnia [Unknown]
  - Constipation [Unknown]
  - Confusional state [Unknown]

NARRATIVE: CASE EVENT DATE: 20210701
